FAERS Safety Report 7413036-3 (Version None)
Quarter: 2011Q2

REPORT INFORMATION
  Report Type: 
  Country: None (occurrence: None)
  Receive Date: 20110408
  Receipt Date: 20110408
  Transmission Date: 20111010
  Serious: Yes (Hospitalization)
  Sender: FDA-Public Use
  Company Number: None

PATIENT
  Age: 69 Year
  Sex: Male
  Weight: 56.3 kg

DRUGS (2)
  1. ROCEPHIN [Suspect]
     Indication: URINARY TRACT INFECTION
     Dosage: 1 GRAM Q24 HOURS IV ONE DOSE
     Route: 042
     Dates: start: 20110404, end: 20110404
  2. ROCEPHIN [Suspect]
     Indication: BACTERAEMIA
     Dosage: 1 GRAM Q24 HOURS IV ONE DOSE
     Route: 042
     Dates: start: 20110404, end: 20110404

REACTIONS (1)
  - THROMBOCYTOPENIA [None]
